FAERS Safety Report 18603545 (Version 2)
Quarter: 2020Q4

REPORT INFORMATION
  Report Type: Report from Study
  Country: None (occurrence: IL)
  Receive Date: 20201211
  Receipt Date: 20201222
  Transmission Date: 20210114
  Serious: Yes (Hospitalization, Other)
  Sender: FDA-Public Use
  Company Number: IL-ABBVIE-20K-082-3681752-00

PATIENT
  Age: 40 Year
  Sex: Female
  Weight: 60 kg

DRUGS (2)
  1. HUMIRA [Suspect]
     Active Substance: ADALIMUMAB
     Indication: CROHN^S DISEASE
     Route: 058
     Dates: start: 20180716
  2. PURINETHOL [Concomitant]
     Active Substance: MERCAPTOPURINE
     Indication: PRODUCT USED FOR UNKNOWN INDICATION
     Dates: start: 2004

REACTIONS (11)
  - Dyspnoea [Recovered/Resolved]
  - Hypertension [Unknown]
  - Pyrexia [Unknown]
  - Caesarean section [Unknown]
  - Maternal exposure during pregnancy [Unknown]
  - Faecal calprotectin abnormal [Unknown]
  - Oxygen saturation decreased [Recovered/Resolved]
  - Respiratory disorder [Recovered/Resolved]
  - Gestational diabetes [Unknown]
  - Tachycardia [Unknown]
  - Live birth [Unknown]

NARRATIVE: CASE EVENT DATE: 20201001
